FAERS Safety Report 8709203 (Version 4)
Quarter: 2012Q4

REPORT INFORMATION
  Report Type: 
  Country: US (occurrence: US)
  Receive Date: 20120806
  Receipt Date: 20121005
  Transmission Date: 20130627
  Serious: Yes (Death, Hospitalization, Other)
  Sender: FDA-Public Use
  Company Number: US-CELGENEUS-163-21880-12073271

PATIENT
  Age: 66 None
  Sex: Male
  Weight: 101.24 kg

DRUGS (1)
  1. REVLIMID [Suspect]
     Indication: MDS
     Dosage: 5 Milligram
     Route: 048
     Dates: start: 20120701, end: 20120806

REACTIONS (6)
  - Sepsis [Fatal]
  - Myelodysplastic syndrome [Fatal]
  - Amnesia [Recovered/Resolved]
  - Confusional state [Recovered/Resolved]
  - Thrombocytopenia [Recovered/Resolved]
  - Dehydration [Recovered/Resolved]
